FAERS Safety Report 18742530 (Version 3)
Quarter: 2021Q1

REPORT INFORMATION
  Report Type: Spontaneous
  Country: US (occurrence: US)
  Receive Date: 20210114
  Receipt Date: 20210209
  Transmission Date: 20210419
  Serious: Yes (Death, Other)
  Sender: FDA-Public Use
  Company Number: US-CATALYST PHARMACEUTICALS, INC-2020CAT00594

PATIENT
  Age: 73 Year
  Sex: Male
  Weight: 76.19 kg

DRUGS (21)
  1. FIRDAPSE [Suspect]
     Active Substance: AMIFAMPRIDINE PHOSPHATE
     Dosage: 30 MG DAILY
     Route: 048
     Dates: start: 20201020, end: 20201023
  2. FIRDAPSE [Suspect]
     Active Substance: AMIFAMPRIDINE PHOSPHATE
     Dosage: 55 MG DOSE
     Route: 048
     Dates: start: 20201109, end: 20201112
  3. FIRDAPSE [Suspect]
     Active Substance: AMIFAMPRIDINE PHOSPHATE
     Dosage: 20 MG, 3X/DAY (60 MG DAILY)
     Route: 048
     Dates: start: 20201113, end: 20201118
  4. SUPER B 100 [Concomitant]
     Dosage: 1 TABLET, 2X/DAY
  5. FIRDAPSE [Suspect]
     Active Substance: AMIFAMPRIDINE PHOSPHATE
     Indication: MYASTHENIC SYNDROME
     Dosage: 5 MG, 3X/DAY, FOR 4 DAYS, THEN INCREASE BY 5 MG EVERY 4 DAYS UNTIL REACHED 20 MG 3X/DAY
     Route: 048
     Dates: start: 20201008, end: 20201011
  6. FIRDAPSE [Suspect]
     Active Substance: AMIFAMPRIDINE PHOSPHATE
     Dosage: 40 MG DAILY
     Route: 048
     Dates: start: 20201028, end: 20201031
  7. ASPIRIN ENTERIC COATED [Concomitant]
     Active Substance: ASPIRIN
     Dosage: 325 MG
  8. COENZYME Q10 [Concomitant]
     Active Substance: DIETARY SUPPLEMENT\UBIDECARENONE
     Dosage: 100 MG, 1X/DAY
  9. FIRDAPSE [Suspect]
     Active Substance: AMIFAMPRIDINE PHOSPHATE
     Dosage: 50 MG DAILY
     Route: 048
     Dates: start: 20201105, end: 20201108
  10. FIRDAPSE [Suspect]
     Active Substance: AMIFAMPRIDINE PHOSPHATE
     Dosage: 35 MG DAILY
     Route: 048
     Dates: start: 20201024, end: 20201027
  11. FIRDAPSE [Suspect]
     Active Substance: AMIFAMPRIDINE PHOSPHATE
     Dosage: 45 MG DAILY
     Route: 048
     Dates: start: 20201101, end: 20201104
  12. FIRDAPSE [Suspect]
     Active Substance: AMIFAMPRIDINE PHOSPHATE
     Dosage: 15 MG, 1X/DAY AT NIGHT
     Route: 048
     Dates: start: 20201119, end: 202012
  13. ATENOLOL. [Concomitant]
     Active Substance: ATENOLOL
     Dosage: 25 MG, 1X/DAY
  14. VITAMIN D [Concomitant]
     Active Substance: VITAMIN D NOS
     Dosage: 1000 IU, 1X/DAY
  15. FIRDAPSE [Suspect]
     Active Substance: AMIFAMPRIDINE PHOSPHATE
     Dosage: 20 MG DAILY
     Route: 048
     Dates: start: 20201012, end: 20201015
  16. FIRDAPSE [Suspect]
     Active Substance: AMIFAMPRIDINE PHOSPHATE
     Dosage: 20 MG, 2X/DAY
     Route: 048
     Dates: start: 20201119, end: 202012
  17. BENAZEPRIL [Concomitant]
     Active Substance: BENAZEPRIL HYDROCHLORIDE
     Dosage: 20 MG, 1X/DAY
  18. FIRDAPSE [Suspect]
     Active Substance: AMIFAMPRIDINE PHOSPHATE
     Dosage: 50 MG DAILY
     Route: 048
     Dates: start: 202012, end: 202012
  19. FIRDAPSE [Suspect]
     Active Substance: AMIFAMPRIDINE PHOSPHATE
     Dosage: 25 MG DAILY
     Route: 048
     Dates: start: 20201016, end: 20201019
  20. TYLENOL [Concomitant]
     Active Substance: ACETAMINOPHEN
     Dosage: 325 MG, AS NEEDED
  21. PREDNISONE. [Concomitant]
     Active Substance: PREDNISONE
     Dosage: 20 MG, 1X/DAY

REACTIONS (19)
  - Insomnia [Unknown]
  - Asthenia [Not Recovered/Not Resolved]
  - Paraesthesia oral [Unknown]
  - Hypophagia [Unknown]
  - Dysphagia [Unknown]
  - Muscle spasms [Unknown]
  - Drug ineffective [Recovered/Resolved]
  - Visual impairment [Unknown]
  - Fatigue [Unknown]
  - Confusional state [Unknown]
  - Lung neoplasm malignant [Fatal]
  - Myasthenic syndrome [Not Recovered/Not Resolved]
  - Mastication disorder [Unknown]
  - Loss of personal independence in daily activities [Unknown]
  - Myalgia [Unknown]
  - Gait disturbance [Unknown]
  - Diplopia [Unknown]
  - Dizziness [Unknown]
  - Paraesthesia [Unknown]

NARRATIVE: CASE EVENT DATE: 2020
